FAERS Safety Report 4490532-2 (Version None)
Quarter: 2004Q4

REPORT INFORMATION
  Report Type: 
  Country: None (occurrence: None)
  Receive Date: 20041029
  Receipt Date: 20041018
  Transmission Date: 20050328
  Serious: Yes (Disabling)
  Sender: FDA-Public Use
  Company Number: 2004GB02477

PATIENT
  Age: 75 Year
  Sex: Male
  Weight: 83 kg

DRUGS (4)
  1. CRESTOR [Suspect]
     Indication: LIPIDS INCREASED
     Dosage: 10 MG DAILY PO
     Route: 048
     Dates: start: 20040505, end: 20040513
  2. CRESTOR [Suspect]
     Indication: LIPIDS INCREASED
     Dosage: 10 MG DAILY PO
     Route: 048
     Dates: start: 20040603, end: 20040606
  3. ASPIRIN [Concomitant]
  4. OMEGA 3 [Concomitant]

REACTIONS (3)
  - GLOSSODYNIA [None]
  - ORAL PAIN [None]
  - RASH [None]
